FAERS Safety Report 13706840 (Version 2)
Quarter: 2018Q1

REPORT INFORMATION
  Report Type: Spontaneous
  Country: US (occurrence: US)
  Receive Date: 20170630
  Receipt Date: 20180118
  Transmission Date: 20180508
  Serious: No
  Sender: FDA-Public Use
  Company Number: US-JNJFOC-20170616859

PATIENT
  Sex: Male

DRUGS (8)
  1. RISPERDAL [Suspect]
     Active Substance: RISPERIDONE
     Indication: DISTURBANCE IN SOCIAL BEHAVIOUR
     Dosage: VARYING DOSES OF UNSPECIFIED DOSE AND 01 MG VARYING FREQUENCY (UNSPECIFIED FREQUENCY/TWICE DAILY)
     Route: 048
     Dates: start: 20060922, end: 20061120
  2. RISPERDAL [Suspect]
     Active Substance: RISPERIDONE
     Indication: DELUSION
     Dosage: VARYING DOSES OF UNSPECIFIED DOSE AND 01 MG VARYING FREQUENCY (UNSPECIFIED FREQUENCY/TWICE DAILY)
     Route: 048
     Dates: start: 20060922, end: 20061120
  3. RISPERDAL [Suspect]
     Active Substance: RISPERIDONE
     Indication: ANXIETY
     Dosage: VARYING DOSES OF UNSPECIFIED DOSE AND 01 MG VARYING FREQUENCY (UNSPECIFIED FREQUENCY/TWICE DAILY)
     Route: 048
     Dates: start: 20060922, end: 20061120
  4. RISPERDAL [Suspect]
     Active Substance: RISPERIDONE
     Indication: ANXIETY
     Route: 048
     Dates: start: 20090109
  5. RISPERDAL [Suspect]
     Active Substance: RISPERIDONE
     Indication: DISTURBANCE IN SOCIAL BEHAVIOUR
     Route: 048
     Dates: start: 20090109
  6. RISPERDAL [Suspect]
     Active Substance: RISPERIDONE
     Indication: DELUSION
     Route: 048
     Dates: start: 20090109
  7. RISPERDAL [Suspect]
     Active Substance: RISPERIDONE
     Indication: ATTENTION DEFICIT/HYPERACTIVITY DISORDER
     Route: 048
     Dates: start: 20090109
  8. RISPERDAL [Suspect]
     Active Substance: RISPERIDONE
     Indication: ATTENTION DEFICIT/HYPERACTIVITY DISORDER
     Dosage: VARYING DOSES OF UNSPECIFIED DOSE AND 01 MG VARYING FREQUENCY (UNSPECIFIED FREQUENCY/TWICE DAILY)
     Route: 048
     Dates: start: 20060922, end: 20061120

REACTIONS (2)
  - Emotional disorder [Unknown]
  - Gynaecomastia [Unknown]
